FAERS Safety Report 20409899 (Version 1)
Quarter: 2022Q1

REPORT INFORMATION
  Report Type: Spontaneous
  Country: US (occurrence: None)
  Receive Date: 20220131
  Receipt Date: 20220131
  Transmission Date: 20220423
  Serious: Yes (Death)
  Sender: FDA-Public Use
  Company Number: None

PATIENT
  Age: 71 Year
  Sex: Female

DRUGS (9)
  1. ZOLEDRONIC ACID [Suspect]
     Active Substance: ZOLEDRONIC ACID
     Indication: Chemotherapy
     Dosage: OTHER FREQUENCY : EVERY 28 DAYS;?
     Route: 041
     Dates: start: 20211111, end: 20211227
  2. CARBOPLATIN [Suspect]
     Active Substance: CARBOPLATIN
     Indication: Chemotherapy
     Dosage: OTHER FREQUENCY : EVERY 3 WEEKS;?
     Route: 041
     Dates: start: 20211111, end: 20211227
  3. Etoposide 20mg/ml Inj [Concomitant]
  4. Diphenhydramine 50mg/ml Inj [Concomitant]
  5. Granisetron 1mg/ml Inj [Concomitant]
  6. Magnesium sulfate 40mg/ml Inj [Concomitant]
  7. Acetaminophen 650mg tab [Concomitant]
  8. ACETAMINOPHEN\OXYCODONE HYDROCHLORIDE [Concomitant]
     Active Substance: ACETAMINOPHEN\OXYCODONE HYDROCHLORIDE
  9. Potassium chloride 20meq ER tab [Concomitant]

REACTIONS (1)
  - Death [None]

NARRATIVE: CASE EVENT DATE: 20220124
